FAERS Safety Report 8004484-1 (Version None)
Quarter: 2011Q4

REPORT INFORMATION
  Report Type: 
  Country: None (occurrence: None)
  Receive Date: 20111223
  Receipt Date: 20111212
  Transmission Date: 20120403
  Serious: Yes (Other)
  Sender: FDA-Public Use
  Company Number: CA-JNJFOC-20111206688

PATIENT
  Sex: Male
  Weight: 59.8 kg

DRUGS (1)
  1. REMICADE [Suspect]
     Indication: CROHN'S DISEASE
     Route: 042

REACTIONS (4)
  - DECREASED APPETITE [None]
  - QUALITY OF LIFE DECREASED [None]
  - DIARRHOEA HAEMORRHAGIC [None]
  - ARTHRALGIA [None]
